FAERS Safety Report 11642699 (Version 8)
Quarter: 2019Q1

REPORT INFORMATION
  Report Type: Spontaneous
  Country: ES (occurrence: ES)
  Receive Date: 20151020
  Receipt Date: 20190201
  Transmission Date: 20190417
  Serious: Yes (Hospitalization, Other)
  Sender: FDA-Public Use
  Company Number: ES-AUROBINDO-AUR-APL-2015-09281

PATIENT
  Age: 56 Year
  Sex: Female

DRUGS (13)
  1. PARACETAMOL [Concomitant]
     Active Substance: ACETAMINOPHEN
     Indication: NEURALGIA
     Dosage: 3 GRAM
     Route: 065
  2. GABAPENTIN. [Suspect]
     Active Substance: GABAPENTIN
     Indication: NEURALGIA
     Dosage: 2200 MG/DAY
     Route: 065
  3. GABAPENTIN. [Suspect]
     Active Substance: GABAPENTIN
     Dosage: 1100 MG/DAY
     Route: 065
  4. AMITRIPTYLINE [Suspect]
     Active Substance: AMITRIPTYLINE
     Indication: NEURALGIA
     Dosage: 10 MG/DAY
     Route: 065
  5. PARACETAMOL [Concomitant]
     Active Substance: ACETAMINOPHEN
     Dosage: 1 GRAM, ONCE A DAY
     Route: 065
  6. TRAMADOL HYDROCHLORIDE. [Suspect]
     Active Substance: TRAMADOL HYDROCHLORIDE
     Indication: PAIN
     Dosage: 100 MG/DAY
     Route: 065
  7. TRAMADOL HYDROCHLORIDE. [Suspect]
     Active Substance: TRAMADOL HYDROCHLORIDE
     Indication: NEURALGIA
     Dosage: DOSE REDUCED TO 50 MG/DAY, SUBSEQUENTLY DISCONTINUED ()
     Route: 065
  8. DULOXETINE 30 MG [Suspect]
     Active Substance: DULOXETINE
     Indication: DEPRESSION
  9. GABAPENTIN. [Suspect]
     Active Substance: GABAPENTIN
     Dosage: 1200 MG/DAY
     Route: 065
  10. TRAMADOL HYDROCHLORIDE. [Suspect]
     Active Substance: TRAMADOL HYDROCHLORIDE
     Dosage: 50 MG/DAY
     Route: 065
  11. TRAMADOL HYDROCHLORIDE. [Suspect]
     Active Substance: TRAMADOL HYDROCHLORIDE
     Dosage: UNK
     Route: 065
  12. DULOXETINE 30 MG [Suspect]
     Active Substance: DULOXETINE
     Indication: ANXIETY
     Dosage: 30 MG/DAY
     Route: 065
  13. GABAPENTIN. [Suspect]
     Active Substance: GABAPENTIN
     Dosage: 1500 MG/DAY
     Route: 065

REACTIONS (12)
  - Hypertension [Recovered/Resolved]
  - Drug intolerance [Unknown]
  - Anxiety [Unknown]
  - Depression [Unknown]
  - Rash [Recovered/Resolved]
  - Psychotic disorder due to a general medical condition [Recovered/Resolved]
  - Hallucination, visual [Recovered/Resolved]
  - Rash pruritic [Recovered/Resolved]
  - Delusion [Recovered/Resolved]
  - Pruritus [Recovered/Resolved]
  - Paranoia [Unknown]
  - Substance-induced psychotic disorder [Recovered/Resolved]
